FAERS Safety Report 4598019-3 (Version None)
Quarter: 2005Q1

REPORT INFORMATION
  Report Type: 
  Country: None (occurrence: None)
  Receive Date: 20050204
  Receipt Date: 20040830
  Transmission Date: 20050727
  Serious: Yes (Hospitalization)
  Sender: FDA-Public Use
  Company Number: PHEH2004US09422

PATIENT
  Age: 38 Year
  Sex: Male

DRUGS (9)
  1. CLOZARIL [Suspect]
     Indication: SCHIZOAFFECTIVE DISORDER
     Dosage: 100 MG, BID, ORAL
     Route: 048
     Dates: start: 20040401
  2. ARICEPT [Concomitant]
  3. ATIVAN [Concomitant]
  4. NASONEX [Concomitant]
  5. SINGULAIR ^DIECKMANN^ (MONTELUKAST SODIUM) [Concomitant]
  6. DARVOCET-N (DEXTROPROPOXYPHENE NAPSILATE, PARACETAMOL) [Concomitant]
  7. RISPERDAL [Concomitant]
  8. GEODON [Concomitant]
  9. VITAMINS (NO INGREDIENTS/SUBSTANCES) [Concomitant]

REACTIONS (2)
  - LEUKOCYTOSIS [None]
  - PSYCHOTIC DISORDER [None]
